FAERS Safety Report 6298221-9 (Version None)
Quarter: 2009Q3

REPORT INFORMATION
  Report Type: 
  Country: None (occurrence: None)
  Receive Date: 20090805
  Receipt Date: 20090728
  Transmission Date: 20100115
  Serious: Yes (Hospitalization, Other)
  Sender: FDA-Public Use
  Company Number: US-AVENTIS-200915262US

PATIENT
  Sex: Female
  Weight: 2.81 kg

DRUGS (3)
  1. LANTUS [Suspect]
     Indication: GESTATIONAL DIABETES
     Route: 064
     Dates: start: 20090407, end: 20090424
  2. HUMALOG [Concomitant]
     Dosage: DOSE: UNK
     Route: 064
  3. PRENATAL VITAMINS                  /01549301/ [Concomitant]
     Indication: PREGNANCY
     Dosage: DOSE QUANTITY: 1
     Route: 064

REACTIONS (8)
  - CEPHALHAEMATOMA [None]
  - DEHYDRATION [None]
  - DRUG EXPOSURE DURING PREGNANCY [None]
  - FEEDING DISORDER NEONATAL [None]
  - HEPATITIS VIRAL [None]
  - HYPOGLYCAEMIA NEONATAL [None]
  - JAUNDICE NEONATAL [None]
  - MENINGITIS NEONATAL [None]
